FAERS Safety Report 21910491 (Version 1)
Quarter: 2023Q1

REPORT INFORMATION
  Report Type: Spontaneous
  Country: US (occurrence: US)
  Receive Date: 20230125
  Receipt Date: 20230125
  Transmission Date: 20230417
  Serious: No
  Sender: FDA-Public Use
  Company Number: US-ALLERGAN-2211320US

PATIENT
  Age: 43 Year
  Sex: Female
  Weight: 63.492 kg

DRUGS (1)
  1. BOTOX COSMETIC [Suspect]
     Active Substance: ONABOTULINUMTOXINA
     Indication: Skin wrinkling
     Dosage: 15 UNITS, SINGLE
     Dates: start: 20220304, end: 20220304

REACTIONS (4)
  - Lipogranuloma [Not Recovered/Not Resolved]
  - Product preparation error [Unknown]
  - Wrong technique in product usage process [Unknown]
  - Muscle atrophy [Not Recovered/Not Resolved]

NARRATIVE: CASE EVENT DATE: 20220401
